FAERS Safety Report 12415075 (Version 4)
Quarter: 2016Q4

REPORT INFORMATION
  Report Type: Spontaneous
  Country: JP (occurrence: JP)
  Receive Date: 20160530
  Receipt Date: 20161007
  Transmission Date: 20170207
  Serious: Yes (Other)
  Sender: FDA-Public Use
  Company Number: JP-AMGEN-JPNSP2016068495

PATIENT
  Age: 89 Year
  Sex: Female

DRUGS (2)
  1. BONALON [Concomitant]
     Active Substance: ALENDRONATE SODIUM
     Dosage: UNK, QWK
     Route: 048
     Dates: start: 20130409, end: 20150430
  2. PRALIA [Suspect]
     Active Substance: DENOSUMAB
     Indication: PRODUCT USED FOR UNKNOWN INDICATION
     Dosage: 60 MG, Q6MO
     Route: 058
     Dates: start: 20150501

REACTIONS (1)
  - Osteonecrosis of jaw [Unknown]

NARRATIVE: CASE EVENT DATE: 20160429
